FAERS Safety Report 5305168-0 (Version None)
Quarter: 2007Q2

REPORT INFORMATION
  Report Type: 
  Country: None (occurrence: None)
  Receive Date: 20070416
  Receipt Date: 20070405
  Transmission Date: 20071010
  Serious: Yes (Death, Hospitalization, Other)
  Sender: FDA-Public Use
  Company Number: 163-21880-07020805

PATIENT
  Age: 71 Year
  Sex: Male

DRUGS (16)
  1. REVLIMID [Suspect]
     Indication: MULTIPLE MYELOMA
     Dosage: 25 MG, 1 IN 1 D, ORAL
     Route: 048
     Dates: start: 20070105, end: 20070122
  2. MULTIVITAMIN [Concomitant]
  3. VICODIN [Concomitant]
  4. ASCORBIC ACID [Concomitant]
  5. PROZAC [Concomitant]
  6. PROTONIX [Concomitant]
  7. FLOMAX (CEFCAPENE PIVOXIL HYDROCHLORIDE) [Concomitant]
  8. AMBIEN [Concomitant]
  9. DURAGESIC PATCH (FENTANYL) (POULTICE OR PATCH) [Concomitant]
  10. DECADRON [Concomitant]
  11. ZOFRAN [Concomitant]
  12. ADVAIR DISKUS 100/50 [Concomitant]
  13. LACTULOSE [Concomitant]
  14. MOM (MAGNESIUM HYDROXIDE) [Concomitant]
  15. TUMS (CALCIUM CARBONATE) [Concomitant]
  16. OCUVITE (OCUVITE) [Concomitant]

REACTIONS (3)
  - DIALYSIS [None]
  - DISEASE PROGRESSION [None]
  - RENAL FAILURE ACUTE [None]
